FAERS Safety Report 19212518 (Version 1)
Quarter: 2021Q2

REPORT INFORMATION
  Report Type: Spontaneous
  Country: US (occurrence: US)
  Receive Date: 20210504
  Receipt Date: 20210504
  Transmission Date: 20210717
  Serious: No
  Sender: FDA-Public Use
  Company Number: US-ASTRAZENECA-2021A354533

PATIENT
  Sex: Female
  Weight: 99.8 kg

DRUGS (9)
  1. QUETIAPINE. [Suspect]
     Active Substance: QUETIAPINE
     Indication: DEPRESSION
     Route: 048
  2. QUETIAPINE. [Suspect]
     Active Substance: QUETIAPINE
     Indication: BIPOLAR DISORDER
     Route: 048
  3. QUETIAPINE. [Suspect]
     Active Substance: QUETIAPINE
     Indication: DEPRESSION
     Dosage: INCREASED THE DOSE TO 300 MG NOT RELATED TO ADVERSE EVENT BUT TO TREAT THE PATIENT FOR INDICATION...
     Route: 048
  4. QUETIAPINE. [Suspect]
     Active Substance: QUETIAPINE
     Indication: SLEEP DISORDER
     Route: 048
  5. QUETIAPINE. [Suspect]
     Active Substance: QUETIAPINE
     Indication: SLEEP DISORDER
     Dosage: THE DOSE WAS DECREASED BACK TO 150 MG RELATED TO ADVERSE EVENT OF SLEEPING TOO MUCH AND ALSO SHE ...
     Route: 048
  6. QUETIAPINE. [Suspect]
     Active Substance: QUETIAPINE
     Indication: BIPOLAR DISORDER
     Dosage: THE DOSE WAS DECREASED BACK TO 150 MG RELATED TO ADVERSE EVENT OF SLEEPING TOO MUCH AND ALSO SHE ...
     Route: 048
  7. QUETIAPINE. [Suspect]
     Active Substance: QUETIAPINE
     Indication: SLEEP DISORDER
     Dosage: INCREASED THE DOSE TO 300 MG NOT RELATED TO ADVERSE EVENT BUT TO TREAT THE PATIENT FOR INDICATION...
     Route: 048
  8. QUETIAPINE. [Suspect]
     Active Substance: QUETIAPINE
     Indication: DEPRESSION
     Dosage: THE DOSE WAS DECREASED BACK TO 150 MG RELATED TO ADVERSE EVENT OF SLEEPING TOO MUCH AND ALSO SHE ...
     Route: 048
  9. QUETIAPINE. [Suspect]
     Active Substance: QUETIAPINE
     Indication: BIPOLAR DISORDER
     Dosage: INCREASED THE DOSE TO 300 MG NOT RELATED TO ADVERSE EVENT BUT TO TREAT THE PATIENT FOR INDICATION...
     Route: 048

REACTIONS (4)
  - Hyperhidrosis [Unknown]
  - Hypersomnia [Unknown]
  - Chills [Not Recovered/Not Resolved]
  - Temperature regulation disorder [Unknown]
